FAERS Safety Report 11099172 (Version 1)
Quarter: 2015Q2

REPORT INFORMATION
  Report Type: Spontaneous
  Country: IT (occurrence: IT)
  Receive Date: 20150508
  Receipt Date: 20150508
  Transmission Date: 20150821
  Serious: Yes (Hospitalization)
  Sender: FDA-Public Use
  Company Number: IT-009507513-1504ITA023958

PATIENT
  Age: 46 Year
  Sex: Male
  Weight: 82 kg

DRUGS (7)
  1. LASIX [Concomitant]
     Active Substance: FUROSEMIDE
     Dosage: UNK
     Route: 048
     Dates: start: 20140901
  2. PANTOPRAZOLE SODIUM. [Concomitant]
     Active Substance: PANTOPRAZOLE SODIUM
     Dosage: UNK
     Dates: start: 20140309
  3. SOVALDI [Suspect]
     Active Substance: SOFOSBUVIR
     Indication: CHRONIC HEPATITIS C
     Dosage: 400 MG, QD
     Route: 048
     Dates: start: 20150318, end: 20150320
  4. NORMIX [Concomitant]
     Active Substance: RIFAXIMIN
     Dosage: UNK
     Route: 048
     Dates: start: 20140901
  5. KANRENOL [Concomitant]
     Active Substance: CANRENOATE POTASSIUM
     Dosage: UNK
     Route: 048
     Dates: start: 20140901
  6. KONAKION [Concomitant]
     Active Substance: PHYTONADIONE
     Dosage: UNK
     Dates: start: 20140309
  7. REBETOL [Suspect]
     Active Substance: RIBAVIRIN
     Indication: CHRONIC HEPATITIS C
     Dosage: 1000 MG, QD
     Route: 048
     Dates: start: 20150318, end: 20150320

REACTIONS (3)
  - Haematemesis [Recovering/Resolving]
  - Melaena [Recovering/Resolving]
  - Oesophageal varices haemorrhage [Recovering/Resolving]

NARRATIVE: CASE EVENT DATE: 20150320
